FAERS Safety Report 25510836 (Version 1)
Quarter: 2025Q3

REPORT INFORMATION
  Report Type: Spontaneous
  Country: US (occurrence: US)
  Receive Date: 20250703
  Receipt Date: 20250703
  Transmission Date: 20251021
  Serious: No
  Sender: RADIUS PHARM
  Company Number: US-RADIUS HEALTH INC.-2024US006228

PATIENT
  Sex: Female

DRUGS (1)
  1. TYMLOS [Suspect]
     Active Substance: ABALOPARATIDE
     Indication: Product used for unknown indication
     Route: 065

REACTIONS (6)
  - Weight decreased [Recovered/Resolved]
  - Weight increased [Unknown]
  - Abdominal rigidity [Not Recovered/Not Resolved]
  - Injection site bruising [Unknown]
  - Pain in extremity [Recovered/Resolved]
  - Abdominal distension [Not Recovered/Not Resolved]
